FAERS Safety Report 21509457 (Version 2)
Quarter: 2023Q1

REPORT INFORMATION
  Report Type: Report from Study
  Country: US (occurrence: US)
  Receive Date: 20221026
  Receipt Date: 20230118
  Transmission Date: 20230418
  Serious: No
  Sender: FDA-Public Use
  Company Number: US-MIRM-000547

PATIENT
  Sex: Female

DRUGS (1)
  1. LIVMARLI [Suspect]
     Active Substance: MARALIXIBAT CHLORIDE
     Indication: Pruritus
     Route: 048

REACTIONS (5)
  - Pruritus [Unknown]
  - Weight increased [Unknown]
  - Drug ineffective [Unknown]
  - Skin haemorrhage [Unknown]
  - Scratch [Unknown]
